FAERS Safety Report 8678612 (Version 2)
Quarter: 2012Q4

REPORT INFORMATION
  Report Type: 
  Country: US (occurrence: US)
  Receive Date: 20120723
  Receipt Date: 20121005
  Transmission Date: 20130627
  Serious: No
  Sender: FDA-Public Use
  Company Number: US-B.I. PHARMACEUTICALS,INC./RIDGEFIELD-2012-BP-15419BP

PATIENT
  Age: 80 Year
  Sex: Female

DRUGS (1)
  1. COMBIVENT [Suspect]
     Route: 055
     Dates: end: 201207

REACTIONS (2)
  - Throat irritation [Unknown]
  - Haemoptysis [Recovered/Resolved]
